FAERS Safety Report 5214392-7 (Version None)
Quarter: 2007Q1

REPORT INFORMATION
  Report Type: 
  Country: None (occurrence: None)
  Receive Date: 20070122
  Receipt Date: 20070109
  Transmission Date: 20070707
  Serious: Yes (Life-Threatening)
  Sender: FDA-Public Use
  Company Number: CZ-AMGEN-ICO206280

PATIENT
  Sex: Female

DRUGS (8)
  1. DARBEPOETIN ALFA [Suspect]
     Indication: RENAL FAILURE CHRONIC
     Route: 058
     Dates: start: 20060714, end: 20061108
  2. HUMULIN R [Concomitant]
  3. ENTOCORT [Concomitant]
  4. RILMENIDINE [Concomitant]
  5. RAMIPRIL [Concomitant]
  6. POTASSIUM CHLORIDE [Concomitant]
  7. FUROSEMIDE [Concomitant]
  8. TRITACE [Concomitant]

REACTIONS (1)
  - VENOUS THROMBOSIS [None]
